FAERS Safety Report 4825206-9 (Version None)
Quarter: 2005Q4

REPORT INFORMATION
  Report Type: 
  Country: None (occurrence: None)
  Receive Date: 20051109
  Receipt Date: 20051027
  Transmission Date: 20060501
  Serious: Yes (Death, Life-Threatening, Hospitalization, Other)
  Sender: FDA-Public Use
  Company Number: 2005125825

PATIENT
  Age: 52 Year
  Sex: Female

DRUGS (6)
  1. LIPITOR [Suspect]
     Indication: HYPERLIPIDAEMIA
     Dosage: 10 MG (1 IN 1 D), ORAL
     Route: 048
     Dates: start: 20040901, end: 20050827
  2. ESTRADERM [Suspect]
     Indication: MENOPAUSAL SYMPTOMS
     Dosage: 0.5 DF (1 IN 1 D), TOPICAL
     Route: 061
     Dates: start: 20040901, end: 20050827
  3. GANATON (ITOPRIDE HYDROCHLORIDE) [Suspect]
     Indication: GASTRITIS
     Dosage: 150 MG (1 IN 1 D), ORAL
     Route: 048
     Dates: start: 20040904, end: 20050827
  4. SELBEX (TEPRENONE) [Concomitant]
  5. METHYCOBAL (MECOBALAMIN) [Concomitant]
  6. DEPAS (ETIZOLAM) [Concomitant]

REACTIONS (21)
  - ANAEMIA [None]
  - ANTITHROMBIN III DECREASED [None]
  - AUTOIMMUNE HEPATITIS [None]
  - BLOOD CHOLESTEROL INCREASED [None]
  - BLOOD IMMUNOGLOBULIN E INCREASED [None]
  - DISSEMINATED INTRAVASCULAR COAGULATION [None]
  - DRUG INEFFECTIVE [None]
  - DUODENAL ULCER HAEMORRHAGE [None]
  - EOSINOPHIL COUNT INCREASED [None]
  - FOOD ALLERGY [None]
  - HAEMODIALYSIS [None]
  - HEPATIC FAILURE [None]
  - HEPATITIS FULMINANT [None]
  - HEPATOCELLULAR DAMAGE [None]
  - HYPERAMMONAEMIA [None]
  - PANCREATITIS [None]
  - PANCREATITIS ACUTE [None]
  - PYREXIA [None]
  - RASH [None]
  - RESPIRATORY FAILURE [None]
  - SOMNOLENCE [None]
